FAERS Safety Report 6782209-5 (Version None)
Quarter: 2010Q2

REPORT INFORMATION
  Report Type: 
  Country: None (occurrence: None)
  Receive Date: 20100615
  Receipt Date: 20100608
  Transmission Date: 20101027
  Serious: Yes (Hospitalization)
  Sender: FDA-Public Use
  Company Number: CV20100258

PATIENT
  Age: 51 Year
  Sex: Female

DRUGS (15)
  1. PROPOFOL [Suspect]
     Indication: INDUCTION OF ANAESTHESIA
     Dosage: INTRAVENOUS
     Route: 042
     Dates: start: 20091201, end: 20091201
  2. SUFENTA (SUFENTANIL CITRATE( (SUFENTANIL CITRATE) [Concomitant]
  3. ATRACURIUM (ATRACURIUM) (ATRACURIUM) [Concomitant]
  4. AUGMENTIN (AUGMENTIN) (AUGMENTIN) [Concomitant]
  5. KETAMINE PANPHARMA (KETAMINE HYDROCHLORIDE) (KETAMINE HYDROCHLORIDE) [Concomitant]
  6. NICARDIPINE AUGUETTANT (NICARDIPINE HYDROCHLORIDE) (NICARDIPINE HYDROC [Concomitant]
  7. SEVORANE (SEVOFLURANE) (SEVOFLURANE) [Concomitant]
  8. DROLEPTAN (DROPERIDOL) (DROPERIDOL) [Concomitant]
  9. NAROPEINE (ROPIVACAINE HYDROCHLORIDE) (ROPIVACAINE HYDROCHLORIDE) [Concomitant]
  10. NEURONTIN (GABAPENTINROPIVACAINE HYDROCHLORIDE) (GABAPENTINROPIVACAINE [Concomitant]
  11. BETADINE (POVIDONE-IODINE) (POVIDONE-IODINE) [Concomitant]
  12. VENTOLINE (SALBUTAMOL) (SALBUTAMOL) [Concomitant]
  13. FLIXOTIDE (FLUTICASONE) (FLUTICASONE) [Concomitant]
  14. FORADIL (FORMOTEROL) (FORMOTEROL) [Concomitant]
  15. AERIUS (EBASTINE) (EBASTINE) [Concomitant]

REACTIONS (3)
  - EOSINOPHIL COUNT ABNORMAL [None]
  - RENAL FAILURE ACUTE [None]
  - WHITE BLOOD CELL COUNT ABNORMAL [None]
